APPROVED DRUG PRODUCT: BACLOFEN
Active Ingredient: BACLOFEN
Strength: 20MG
Dosage Form/Route: TABLET;ORAL
Application: A211555 | Product #002 | TE Code: BX
Applicant: HIBROW HEALTHCARE PRIVATE LTD
Approved: Feb 1, 2019 | RLD: No | RS: No | Type: RX